FAERS Safety Report 10160427 (Version 1)
Quarter: 2014Q2

REPORT INFORMATION
  Report Type: Spontaneous
  Country: GB (occurrence: GB)
  Receive Date: 20140508
  Receipt Date: 20140508
  Transmission Date: 20141212
  Serious: Yes (Life-Threatening, Other)
  Sender: FDA-Public Use
  Company Number: GB-TEVA-480045ISR

PATIENT
  Age: 35 Year
  Sex: Male

DRUGS (2)
  1. FENTANYL [Suspect]
     Indication: INDUCTION OF ANAESTHESIA
     Dates: start: 20140327
  2. PROPOFOL [Suspect]
     Indication: INDUCTION OF ANAESTHESIA
     Dates: start: 20140327

REACTIONS (2)
  - Cardiac arrest [Recovered/Resolved]
  - Bradycardia [Recovered/Resolved]
